FAERS Safety Report 18663710 (Version 1)
Quarter: 2020Q4

REPORT INFORMATION
  Report Type: Spontaneous
  Country: US (occurrence: US)
  Receive Date: 20201224
  Receipt Date: 20201224
  Transmission Date: 20210114
  Serious: No
  Sender: FDA-Public Use
  Company Number: US-LUPIN PHARMACEUTICALS INC.-2020-10430

PATIENT
  Age: 11 Month
  Sex: Female
  Weight: 8.5 kg

DRUGS (2)
  1. NYSTATIN. [Suspect]
     Active Substance: NYSTATIN
     Indication: DERMATITIS DIAPER
     Dosage: UNK
     Route: 061
  2. FLUCONAZOLE. [Suspect]
     Active Substance: FLUCONAZOLE
     Indication: DERMATITIS DIAPER
     Dosage: UNK
     Route: 048

REACTIONS (1)
  - Drug ineffective [Unknown]
